FAERS Safety Report 25954269 (Version 2)
Quarter: 2025Q4

REPORT INFORMATION
  Report Type: Report from Study
  Country: CO (occurrence: None)
  Receive Date: 20251023
  Receipt Date: 20251221
  Transmission Date: 20260118
  Serious: Yes (Other)
  Sender: UCB
  Company Number: CO-UCBSA-2025066215

PATIENT
  Age: 39 Year
  Weight: 70 kg

DRUGS (1)
  1. CIMZIA [Suspect]
     Active Substance: CERTOLIZUMAB PEGOL
     Indication: Rheumatoid arthritis
     Dosage: 400 MILLIGRAM, EV 30 DAYS

REACTIONS (2)
  - Latent tuberculosis [Recovering/Resolving]
  - Off label use [Unknown]
